FAERS Safety Report 11146612 (Version 1)
Quarter: 2015Q2

REPORT INFORMATION
  Report Type: Spontaneous
  Country: FR (occurrence: None)
  Receive Date: 20150526
  Receipt Date: 20150526
  Transmission Date: 20150821
  Serious: No
  Sender: FDA-Public Use
  Company Number: 1609524

PATIENT
  Sex: Female

DRUGS (2)
  1. PERINDOPRIL ERBUMINE. [Suspect]
     Active Substance: PERINDOPRIL ERBUMINE
     Indication: HYPERTENSION
     Dates: start: 201012
  2. ENALAPRIL [Suspect]
     Active Substance: ENALAPRIL
     Indication: HYPERTENSION
     Dates: start: 200910

REACTIONS (3)
  - Ovarian cancer recurrent [None]
  - Malignant neoplasm progression [None]
  - Hypertension [None]

NARRATIVE: CASE EVENT DATE: 201012
